FAERS Safety Report 5123093-5 (Version None)
Quarter: 2006Q4

REPORT INFORMATION
  Report Type: 
  Country: None (occurrence: None)
  Receive Date: 20061009
  Receipt Date: 20050615
  Transmission Date: 20070319
  Serious: Yes (Other)
  Sender: FDA-Public Use
  Company Number: 200515076US

PATIENT
  Sex: Male
  Weight: 91 kg

DRUGS (10)
  1. LANTUS [Suspect]
     Indication: DIABETES MELLITUS NON-INSULIN-DEPENDENT
     Route: 058
     Dates: start: 20020101
  2. LANTUS [Suspect]
     Dosage: DOSE: 25 IN AM AND 25-28 UNITS IN PM
  3. LANTUS [Suspect]
  4. APIDRA [Suspect]
     Dosage: DOSE: SLIDING SCALE WITH EACH MEAL
     Dates: start: 20040101
  5. CARDIZEM CD [Concomitant]
  6. DIOVAN [Concomitant]
  7. ASPIRIN [Concomitant]
  8. PLETAL [Concomitant]
  9. HUMALOG [Concomitant]
  10. NORVASC [Concomitant]
     Dosage: DOSE: 5 MG DAILY

REACTIONS (7)
  - BLOOD GLUCOSE DECREASED [None]
  - BLOOD GLUCOSE INCREASED [None]
  - BLOOD PRESSURE INCREASED [None]
  - POOR QUALITY DRUG ADMINISTERED [None]
  - RETINAL DETACHMENT [None]
  - RETINAL HAEMORRHAGE [None]
  - VITREOUS HAEMORRHAGE [None]
